FAERS Safety Report 12153653 (Version 1)
Quarter: 2016Q1

REPORT INFORMATION
  Report Type: Spontaneous
  Country: US (occurrence: US)
  Receive Date: 20160307
  Receipt Date: 20160307
  Transmission Date: 20160526
  Serious: No
  Sender: FDA-Public Use
  Company Number: US-LEO PHARMA-240498

PATIENT
  Age: 63 Year
  Sex: Male

DRUGS (1)
  1. PICATO [Suspect]
     Active Substance: INGENOL MEBUTATE
     Indication: PRECANCEROUS SKIN LESION
     Route: 061
     Dates: start: 20160227, end: 20160229

REACTIONS (6)
  - Application site erythema [Recovered/Resolved]
  - Drug administered at inappropriate site [Unknown]
  - Application site burn [Unknown]
  - Application site swelling [Recovering/Resolving]
  - Application site dryness [Not Recovered/Not Resolved]
  - Application site exfoliation [Not Recovered/Not Resolved]

NARRATIVE: CASE EVENT DATE: 20160227
